FAERS Safety Report 5374709-X (Version None)
Quarter: 2007Q2

REPORT INFORMATION
  Report Type: 
  Country: None (occurrence: None)
  Receive Date: 20070629
  Receipt Date: 20070620
  Transmission Date: 20071010
  Serious: Yes (Other)
  Sender: FDA-Public Use
  Company Number: US-JNJFOC-20070605347

PATIENT
  Age: 76 Year
  Sex: Female
  Weight: 57.15 kg

DRUGS (3)
  1. RETIN-A [Suspect]
     Indication: ACNE
     Route: 061
  2. HIGH BLOOD PRESSURE MEDICATION [Concomitant]
     Route: 065
  3. SYNTHROID [Concomitant]
     Route: 065

REACTIONS (1)
  - HYPOAESTHESIA [None]
